FAERS Safety Report 8534120-7 (Version None)
Quarter: 2012Q3

REPORT INFORMATION
  Report Type: 
  Country: None (occurrence: None)
  Receive Date: 20120724
  Receipt Date: 20120724
  Transmission Date: 20120928
  Serious: Yes (Other)
  Sender: FDA-Public Use
  Company Number: SG-BAYER-2012-073631

PATIENT
  Age: 55 Year
  Sex: Female

DRUGS (1)
  1. NIFEDIPINE [Suspect]
     Dosage: 30 MG, UNK
     Dates: start: 20080829

REACTIONS (2)
  - DIZZINESS [None]
  - ABDOMINAL DISTENSION [None]
